FAERS Safety Report 13131458 (Version 1)
Quarter: 2017Q1

REPORT INFORMATION
  Report Type: Spontaneous
  Country: US (occurrence: US)
  Receive Date: 20170119
  Receipt Date: 20170119
  Transmission Date: 20170428
  Serious: Yes (Hospitalization, Other)
  Sender: FDA-Public Use
  Company Number: US-ASTRAZENECA-2017SE04065

PATIENT
  Sex: Female
  Weight: 54.4 kg

DRUGS (4)
  1. XARELTO [Concomitant]
     Active Substance: RIVAROXABAN
  2. BRILINTA [Suspect]
     Active Substance: TICAGRELOR
     Indication: STENT PLACEMENT
     Route: 048
  3. ASPIRIN. [Concomitant]
     Active Substance: ASPIRIN
     Route: 065
  4. RANEXA [Concomitant]
     Active Substance: RANOLAZINE
     Route: 065

REACTIONS (29)
  - Bone disorder [Unknown]
  - Aortic calcification [Unknown]
  - Vascular calcification [Unknown]
  - Gait disturbance [Unknown]
  - Thrombosis [Unknown]
  - Swelling face [Unknown]
  - Mouth haemorrhage [Unknown]
  - Pulmonary thrombosis [Unknown]
  - Ankle fracture [Unknown]
  - Synovial cyst [Unknown]
  - Peripheral swelling [Unknown]
  - Pneumonia [Unknown]
  - Body height decreased [Unknown]
  - Infectious thyroiditis [Unknown]
  - Malaise [Unknown]
  - Feeling abnormal [Unknown]
  - Spinal column injury [Unknown]
  - Lower limb fracture [Unknown]
  - Osteonecrosis [Unknown]
  - Thyroid mass [Unknown]
  - Lymphadenopathy [Unknown]
  - Weight decreased [Unknown]
  - Liver disorder [Unknown]
  - Dyspnoea [Unknown]
  - Fat tissue increased [Unknown]
  - Off label use [Unknown]
  - Lymphatic system neoplasm [Unknown]
  - Fall [Unknown]
  - Pulmonary mass [Unknown]
